FAERS Safety Report 8093083-1 (Version None)
Quarter: 2012Q1

REPORT INFORMATION
  Report Type: 
  Country: None (occurrence: None)
  Receive Date: 20120128
  Receipt Date: 20110915
  Transmission Date: 20120608
  Serious: No
  Sender: FDA-Public Use
  Company Number: US-ABBOTT-11P-163-0851458-00

PATIENT
  Sex: Female

DRUGS (26)
  1. ASPIRIN [Concomitant]
     Indication: PRODUCT USED FOR UNKNOWN INDICATION
  2. ARICEPT [Concomitant]
     Indication: AMNESIA
     Dosage: 1 AT BEDTIME
  3. CLARITIN [Concomitant]
     Indication: PRODUCT USED FOR UNKNOWN INDICATION
  4. TRIAMCINOLONE [Concomitant]
     Indication: PRODUCT USED FOR UNKNOWN INDICATION
     Route: 061
  5. LASIX [Concomitant]
     Indication: PRODUCT USED FOR UNKNOWN INDICATION
  6. SOMA [Concomitant]
     Dosage: 1 TABLET AT NIGHT
  7. TRAZODONE HCL [Concomitant]
     Indication: INSOMNIA
  8. LORTAB [Concomitant]
     Indication: HYPERSENSITIVITY
  9. SINGULAIR [Concomitant]
     Indication: HYPERSENSITIVITY
     Dosage: 1 IN AM
  10. XANAX [Concomitant]
     Indication: ANXIETY
     Dosage: 1- 2 PRN
  11. HUMIRA [Suspect]
     Indication: RHEUMATOID ARTHRITIS
     Dates: start: 20110501
  12. XALATHAN [Concomitant]
     Indication: PRODUCT USED FOR UNKNOWN INDICATION
     Dosage: EYE DROPS
  13. WELLBUTRIN SR [Concomitant]
     Indication: DEPRESSION
  14. RESTORIL [Concomitant]
     Indication: PRODUCT USED FOR UNKNOWN INDICATION
  15. CARDIZEM CD [Concomitant]
     Indication: DRUG THERAPY
  16. LEVOTHYROXINE SODIUM [Concomitant]
     Indication: HYPOTHYROIDISM
  17. LUNESTA [Concomitant]
     Indication: PRODUCT USED FOR UNKNOWN INDICATION
  18. VICODIN [Concomitant]
     Indication: PAIN
  19. LISINOPRIL [Concomitant]
     Indication: BLOOD PRESSURE INCREASED
  20. PREMARIN [Concomitant]
     Indication: HORMONE REPLACEMENT THERAPY
  21. LIDODERM [Concomitant]
     Indication: PRODUCT USED FOR UNKNOWN INDICATION
     Dosage: PATCH
  22. TYLENOL W/ CODEINE [Concomitant]
     Indication: PAIN
  23. DILTIAZEM [Concomitant]
     Indication: PRODUCT USED FOR UNKNOWN INDICATION
  24. CRESTOR [Concomitant]
     Indication: BLOOD CHOLESTEROL INCREASED
  25. OXYBUTYNIN [Concomitant]
     Indication: BLADDER DISORDER
  26. CYMBALTA [Concomitant]
     Indication: DEPRESSION

REACTIONS (8)
  - INJECTION SITE PRURITUS [None]
  - INJECTION SITE NODULE [None]
  - HEADACHE [None]
  - INJECTION SITE ERYTHEMA [None]
  - NASAL CONGESTION [None]
  - OROPHARYNGEAL PAIN [None]
  - RHINORRHOEA [None]
  - COUGH [None]
